FAERS Safety Report 8960943 (Version 1)
Quarter: 2012Q4

REPORT INFORMATION
  Report Type: 
  Country: ES (occurrence: ES)
  Receive Date: 20121213
  Receipt Date: 20121213
  Transmission Date: 20130627
  Serious: Yes (Death, Hospitalization, Other)
  Sender: FDA-Public Use
  Company Number: ES-BAYER-2012-130008

PATIENT
  Age: 40 Year
  Sex: Female

DRUGS (5)
  1. NEXAVAR [Suspect]
     Dosage: UNK
     Dates: start: 20121005, end: 20121111
  2. AXITINIB [Suspect]
     Indication: RENAL CELL CARCINOMA
     Dosage: 5 mg, BID
     Dates: start: 20120810
  3. AXITINIB [Suspect]
     Indication: RENAL CELL CARCINOMA
     Dosage: UNK
     Dates: start: 20120823, end: 20121004
  4. FUROSEMIDE [Concomitant]
     Dosage: 40 mg, QD
     Dates: start: 20120906, end: 20120911
  5. RESIN CALCIUM [Concomitant]
     Dosage: UNK
     Dates: start: 20120911

REACTIONS (7)
  - Multi-organ failure [Fatal]
  - Anaemia [Not Recovered/Not Resolved]
  - Renal pain [None]
  - Pyrexia [None]
  - Pulmonary embolism [Not Recovered/Not Resolved]
  - General physical health deterioration [None]
  - Pain [None]
